FAERS Safety Report 18549107 (Version 1)
Quarter: 2020Q4

REPORT INFORMATION
  Report Type: Spontaneous
  Country: US (occurrence: US)
  Receive Date: 20201126
  Receipt Date: 20201126
  Transmission Date: 20210114
  Serious: No
  Sender: FDA-Public Use
  Company Number: US-GLENMARK PHARMACEUTICALS-2020GMK049610

PATIENT

DRUGS (2)
  1. CLOBETASOL PROPIONATE CREAM USP, 0.05% [Suspect]
     Active Substance: CLOBETASOL PROPIONATE
     Dosage: UNK, (TWO WEEK)
     Route: 061
     Dates: start: 20200827, end: 20200910
  2. CLOBETASOL PROPIONATE CREAM USP, 0.05% [Suspect]
     Active Substance: CLOBETASOL PROPIONATE
     Indication: LICHEN SCLEROSUS
     Dosage: UNK
     Route: 061
     Dates: start: 20200807, end: 20200814

REACTIONS (3)
  - Drug effective for unapproved indication [Unknown]
  - Therapy cessation [Unknown]
  - Product use issue [Unknown]

NARRATIVE: CASE EVENT DATE: 2020
